FAERS Safety Report 25058533 (Version 1)
Quarter: 2025Q1

REPORT INFORMATION
  Report Type: Spontaneous
  Country: US (occurrence: None)
  Receive Date: 20250309
  Receipt Date: 20250309
  Transmission Date: 20250409
  Serious: Yes (Other)
  Sender: FDA-CTU
  Company Number: None

PATIENT
  Age: 47 Year
  Sex: Female

DRUGS (1)
  1. ZEPBOUND [Suspect]
     Active Substance: TIRZEPATIDE

REACTIONS (4)
  - Back pain [None]
  - Abdominal pain upper [None]
  - Sleep disorder [None]
  - Abdominal distension [None]

NARRATIVE: CASE EVENT DATE: 20250301
